FAERS Safety Report 8505323-2 (Version None)
Quarter: 2012Q3

REPORT INFORMATION
  Report Type: 
  Country: None (occurrence: None)
  Receive Date: 20120712
  Receipt Date: 20120706
  Transmission Date: 20120928
  Serious: Yes (Hospitalization)
  Sender: FDA-Public Use
  Company Number: FR-PFIZER INC-2012161967

PATIENT
  Age: 74 Year
  Sex: Male
  Weight: 177 kg

DRUGS (10)
  1. COLCHICINE [Suspect]
     Indication: GOUT
     Dosage: 0.5 DF, 2X/DAY
     Route: 048
     Dates: start: 20110428
  2. BISOPROLOL FUMARATE [Concomitant]
     Dosage: 1.25 MG, 2X/DAY
  3. LASIX [Suspect]
     Indication: HYPERTENSION
     Dosage: 40 TO 120MG, ONCE PER DAY
     Route: 048
  4. ALDACTONE [Suspect]
     Indication: HYPERTENSION
     Dosage: 25 MG, 1X/DAY
     Route: 048
  5. DIAMICRON [Concomitant]
     Dosage: 4 DF, 1X/DAY
  6. ALLOPURINOL [Concomitant]
     Indication: GOUT
     Dosage: 100 MG, 1X/DAY
  7. CAPTOPRIL [Concomitant]
     Dosage: 25 MG, 2X/DAY
  8. JANUVIA [Suspect]
     Indication: TYPE 2 DIABETES MELLITUS
     Dosage: 1 DF, 1X/DAY
     Route: 048
     Dates: end: 20110430
  9. GLUCOPHAGE [Concomitant]
     Dosage: 1 G, 2X/DAY
     Route: 048
     Dates: end: 20120430
  10. ATORVASTATIN [Concomitant]
     Indication: DYSLIPIDAEMIA
     Dosage: 20 MG, 1X/DAY

REACTIONS (3)
  - RENAL FAILURE [None]
  - DIABETES MELLITUS INADEQUATE CONTROL [None]
  - VOMITING [None]
